FAERS Safety Report 10610853 (Version 2)
Quarter: 2014Q4

REPORT INFORMATION
  Report Type: Spontaneous
  Country: US (occurrence: US)
  Receive Date: 20141126
  Receipt Date: 20141126
  Transmission Date: 20150529
  Serious: Yes (Other)
  Sender: FDA-Public Use
  Company Number: US-BRISTOL-MYERS SQUIBB COMPANY-21235114

PATIENT
  Age: 67 Year
  Sex: Female
  Weight: 63.04 kg

DRUGS (14)
  1. XELODA [Suspect]
     Active Substance: CAPECITABINE
     Route: 048
     Dates: start: 201208, end: 2012
  2. LACTULOSE. [Concomitant]
     Active Substance: LACTULOSE
  3. GRANISETRON HCL [Concomitant]
  4. DEXAMETHASONE SODIUM PHOSPHATE. [Concomitant]
     Active Substance: DEXAMETHASONE SODIUM PHOSPHATE
  5. FAMOTIDINE. [Concomitant]
     Active Substance: FAMOTIDINE
  6. PERCOCET [Concomitant]
     Active Substance: ACETAMINOPHEN\OXYCODONE HYDROCHLORIDE
  7. AMBIEN [Concomitant]
     Active Substance: ZOLPIDEM TARTRATE
  8. DIPHENHYDRAMINE HCL [Concomitant]
     Active Substance: DIPHENHYDRAMINE HYDROCHLORIDE
  9. ZOMETA [Suspect]
     Active Substance: ZOLEDRONIC ACID
     Dosage: 21AUG12
     Route: 042
     Dates: start: 20111011
  10. ABRAXANE [Concomitant]
     Active Substance: PACLITAXEL
  11. GABAPENTIN. [Concomitant]
     Active Substance: GABAPENTIN
  12. IXEMPRA [Suspect]
     Active Substance: IXABEPILONE
     Indication: BREAST CANCER METASTATIC
     Dosage: 1 CYC:21AUG12, 2CYC:11SEP12?27,2727 MG/M2
     Route: 042
     Dates: start: 20120821, end: 20140429
  13. ALOXI [Concomitant]
     Active Substance: PALONOSETRON HYDROCHLORIDE
  14. PALONOSETRON [Concomitant]
     Active Substance: PALONOSETRON

REACTIONS (5)
  - Onychomycosis [Unknown]
  - Pain in extremity [Recovered/Resolved]
  - Neutropenia [Unknown]
  - Neuropathy peripheral [Unknown]
  - Malignant neoplasm progression [Unknown]

NARRATIVE: CASE EVENT DATE: 2012
